FAERS Safety Report 21375656 (Version 1)
Quarter: 2022Q3

REPORT INFORMATION
  Report Type: Spontaneous
  Country: IT (occurrence: IT)
  Receive Date: 20220926
  Receipt Date: 20220926
  Transmission Date: 20221027
  Serious: Yes (Death, Life-Threatening, Hospitalization, Other)
  Sender: FDA-Public Use
  Company Number: None

PATIENT
  Age: 32 Year
  Sex: Female
  Weight: 76 kg

DRUGS (4)
  1. MYCOPHENOLATE MOFETIL [Suspect]
     Active Substance: MYCOPHENOLATE MOFETIL
     Indication: Immunosuppressant drug therapy
     Dosage: 2 GRAM, QD
     Route: 065
  2. CYCLOSPORINE [Suspect]
     Active Substance: CYCLOSPORINE
     Indication: Immunosuppressant drug therapy
     Dosage: PLASMATIC CYCLOSPORINE CONC. TARGET OF 200 NG/ML
     Route: 065
  3. METHYLPREDNISOLONE [Suspect]
     Active Substance: METHYLPREDNISOLONE
     Indication: Immunosuppressant drug therapy
     Dosage: 0.5 MILLIGRAM/KILOGRAM, QD
     Route: 065
  4. HUMAN CYTOMEGALOVIRUS IMMUNE GLOBULIN [Concomitant]
     Active Substance: HUMAN CYTOMEGALOVIRUS IMMUNE GLOBULIN
     Indication: Antiviral prophylaxis
     Dosage: 75 INTERNATIONAL UNIT/KILOGRAM, Q4D
     Route: 065

REACTIONS (8)
  - Wound dehiscence [Fatal]
  - Septic shock [Fatal]
  - Klebsiella infection [Fatal]
  - Peritonitis [Recovering/Resolving]
  - Large intestine perforation [Recovering/Resolving]
  - Cytomegalovirus infection [Recovering/Resolving]
  - Colitis [Recovering/Resolving]
  - Acute respiratory failure [Recovering/Resolving]
